FAERS Safety Report 26073275 (Version 1)
Quarter: 2025Q4

REPORT INFORMATION
  Report Type: Spontaneous
  Country: US (occurrence: US)
  Receive Date: 20251121
  Receipt Date: 20251121
  Transmission Date: 20260117
  Serious: No
  Sender: OTSUKA
  Company Number: US-MMM-Otsuka-VWUOXC7S

PATIENT
  Sex: Female
  Weight: 79.83 kg

DRUGS (3)
  1. NUEDEXTA [Suspect]
     Active Substance: DEXTROMETHORPHAN HYDROBROMIDE\QUINIDINE SULFATE
     Indication: Amyotrophic lateral sclerosis
     Dosage: UNK
     Route: 065
  2. SERTRALINE [Concomitant]
     Active Substance: SERTRALINE HYDROCHLORIDE
     Indication: Product used for unknown indication
     Dosage: UNK (2 WEEKS OFF AND 2 WEEKS ON)
     Route: 065
  3. RADICAVA [Concomitant]
     Active Substance: EDARAVONE
     Indication: Product used for unknown indication
     Dosage: UNK (2 WEEKS OFF AND 2 WEEKS ON)
     Route: 065

REACTIONS (4)
  - Crying [Not Recovered/Not Resolved]
  - Emotional disorder [Unknown]
  - Product use in unapproved indication [Unknown]
  - Therapy interrupted [Unknown]
